FAERS Safety Report 8570280-X (Version None)
Quarter: 2012Q3

REPORT INFORMATION
  Report Type: 
  Country: None (occurrence: None)
  Receive Date: 20120803
  Receipt Date: 20120727
  Transmission Date: 20120928
  Serious: Yes (Death)
  Sender: FDA-Public Use
  Company Number: JP-ROCHE-1081335

PATIENT
  Sex: Female

DRUGS (6)
  1. ACTEMRA [Suspect]
     Dosage: 456-464MG
     Route: 041
     Dates: start: 20090721, end: 20100223
  2. MOBIC [Concomitant]
     Indication: RHEUMATOID ARTHRITIS
     Route: 048
  3. ACTEMRA [Suspect]
     Indication: RHEUMATOID ARTHRITIS
     Dosage: 440-472MG
     Route: 041
     Dates: start: 20080909, end: 20090519
  4. ACTEMRA [Suspect]
     Route: 041
     Dates: start: 20100406, end: 20100406
  5. RHEUMATREX [Concomitant]
     Indication: RHEUMATOID ARTHRITIS
     Dosage: AMOUNT 2
     Route: 048
  6. FAMOTIDINE [Concomitant]
     Indication: PROPHYLAXIS
     Route: 048

REACTIONS (1)
  - INTERSTITIAL LUNG DISEASE [None]
